FAERS Safety Report 4450244-8 (Version None)
Quarter: 2004Q3

REPORT INFORMATION
  Report Type: 
  Country: None (occurrence: None)
  Receive Date: 20040914
  Receipt Date: 20040906
  Transmission Date: 20050211
  Serious: Yes (Hospitalization)
  Sender: FDA-Public Use
  Company Number: 2001047306FR

PATIENT
  Age: 60 Year
  Sex: Female
  Weight: 95 kg

DRUGS (6)
  1. CELEBREX [Suspect]
     Indication: RHEUMATOID ARTHRITIS
     Dosage: 200 MG, QD, ORAL
     Route: 048
     Dates: start: 20010103, end: 20010120
  2. DI-ANTALVIC (DEXTROPROPOXYPHENE HYDROCHLORIDE) [Suspect]
     Indication: OSTEOPOROSIS
     Dosage: 6 DF, QD, ORAL
     Route: 048
     Dates: start: 20010103, end: 20010120
  3. ROCEPHIN [Concomitant]
  4. VIOXX [Concomitant]
  5. SECTRAL [Concomitant]
  6. FLECAINE [Concomitant]

REACTIONS (7)
  - ATRIAL FIBRILLATION [None]
  - CARDIAC FAILURE [None]
  - CYTOLYTIC HEPATITIS [None]
  - EYELID OEDEMA [None]
  - HEPATITIS [None]
  - OEDEMA [None]
  - URTICARIA [None]
